FAERS Safety Report 8255930-X (Version None)
Quarter: 2012Q2

REPORT INFORMATION
  Report Type: 
  Country: None (occurrence: None)
  Receive Date: 20120403
  Receipt Date: 20120319
  Transmission Date: 20120825
  Serious: Yes (Hospitalization, Other)
  Sender: FDA-Public Use
  Company Number: CA-ROCHE-1052166

PATIENT
  Sex: Female

DRUGS (1)
  1. XOLAIR [Suspect]
     Indication: ASTHMA
     Route: 058
     Dates: start: 20100729

REACTIONS (12)
  - BLOOD PRESSURE INCREASED [None]
  - NASOPHARYNGITIS [None]
  - DIARRHOEA [None]
  - SINUSITIS [None]
  - VOMITING [None]
  - DIZZINESS [None]
  - INJECTION SITE DISCOMFORT [None]
  - DYSPNOEA [None]
  - CHEST DISCOMFORT [None]
  - PNEUMONIA [None]
  - ASTHMA [None]
  - HEADACHE [None]
